FAERS Safety Report 6503123-6 (Version None)
Quarter: 2009Q4

REPORT INFORMATION
  Report Type: 
  Country: None (occurrence: None)
  Receive Date: 20091217
  Receipt Date: 20091209
  Transmission Date: 20100525
  Serious: Yes (Hospitalization)
  Sender: FDA-Public Use
  Company Number: JP-ROCHE-674661

PATIENT
  Age: 13 Year
  Sex: Male

DRUGS (2)
  1. TAMIFLU [Suspect]
     Indication: INFLUENZA
     Dosage: DRUG REPORTED AS TAMIFLU DRY SYRUP 3%(OSELTAMIVIR)
     Route: 048
     Dates: start: 20091123, end: 20091123
  2. PYRIDOXAL PHOSPHATE [Suspect]
     Indication: EPILEPSY
     Dosage: DRUG REPORTED AS PYDOXAL INJECTION(PYRIDOXAL PHOSPHATE)
     Route: 042
     Dates: start: 20091123, end: 20091123

REACTIONS (1)
  - ALTERED STATE OF CONSCIOUSNESS [None]
